FAERS Safety Report 12483845 (Version 1)
Quarter: 2016Q2

REPORT INFORMATION
  Report Type: Spontaneous
  Country: US (occurrence: US)
  Receive Date: 20160621
  Receipt Date: 20160621
  Transmission Date: 20160815
  Serious: No
  Sender: FDA-Public Use
  Company Number: US-ZYDUS-008807

PATIENT
  Age: 69 Year
  Sex: Male

DRUGS (1)
  1. TAMSULOSIN/TAMSULOSIN HYDROCHLORIDE [Suspect]
     Active Substance: TAMSULOSIN HYDROCHLORIDE
     Indication: NOCTURIA
     Route: 048
     Dates: start: 20150706

REACTIONS (3)
  - Product substitution issue [None]
  - Nocturia [Not Recovered/Not Resolved]
  - Drug ineffective for unapproved indication [Not Recovered/Not Resolved]

NARRATIVE: CASE EVENT DATE: 201507
